FAERS Safety Report 10088680 (Version 2)
Quarter: 2014Q2

REPORT INFORMATION
  Report Type: Report from Study
  Country: US (occurrence: US)
  Receive Date: 20140421
  Receipt Date: 20140529
  Transmission Date: 20141212
  Serious: Yes (Other)
  Sender: FDA-Public Use
  Company Number: US-BIOGENIDEC-2014BI033045

PATIENT
  Sex: Female

DRUGS (20)
  1. TECFIDERA [Suspect]
     Indication: MULTIPLE SCLEROSIS
     Route: 048
     Dates: start: 201403, end: 20140401
  2. HYDROXYZINE [Concomitant]
  3. VITAMIN D [Concomitant]
  4. DULOXETINE [Concomitant]
  5. GABAPENTIN [Concomitant]
  6. CLONAZEPAM [Concomitant]
  7. PROMETHAZINE [Concomitant]
  8. FLUCONAZOLE [Concomitant]
  9. NAPROXEN [Concomitant]
  10. TIZANIDINE [Concomitant]
  11. PANTOPRAZOLE [Concomitant]
  12. HYDROCODONE [Concomitant]
  13. BUTORPHANOL [Concomitant]
  14. BETAMETHASONE VALERATE [Concomitant]
  15. PRO AIR [Concomitant]
  16. LASIX [Concomitant]
  17. WARFARIN [Concomitant]
  18. ZINC [Concomitant]
  19. CO Q 10 [Concomitant]
  20. CALTRATE D [Concomitant]

REACTIONS (3)
  - Anaphylactic reaction [Unknown]
  - Blood pressure increased [Unknown]
  - Nausea [Unknown]
